FAERS Safety Report 11925473 (Version 1)
Quarter: 2016Q1

REPORT INFORMATION
  Report Type: Spontaneous
  Country: US (occurrence: US)
  Receive Date: 20160118
  Receipt Date: 20160118
  Transmission Date: 20160526
  Serious: Yes (Other)
  Sender: FDA-Public Use
  Company Number: US-BAYER-2016-007179

PATIENT
  Age: 66 Year
  Sex: Female
  Weight: 45.35 kg

DRUGS (3)
  1. AFRIN ORIGINAL [Suspect]
     Active Substance: OXYMETAZOLINE HYDROCHLORIDE
     Indication: NASAL CONGESTION
     Dosage: 2 DF, BID
     Route: 045
     Dates: start: 1973
  2. XANAX [Concomitant]
     Active Substance: ALPRAZOLAM
  3. MIRABEGRON [Concomitant]
     Active Substance: MIRABEGRON

REACTIONS (2)
  - Drug dependence [None]
  - Product use issue [None]

NARRATIVE: CASE EVENT DATE: 1973
